FAERS Safety Report 21696320 (Version 2)
Quarter: 2024Q1

REPORT INFORMATION
  Report Type: Spontaneous
  Country: US (occurrence: US)
  Receive Date: 20221207
  Receipt Date: 20240123
  Transmission Date: 20240410
  Serious: No
  Sender: FDA-Public Use
  Company Number: US-SA-SAC20221201001122

PATIENT
  Age: 65 Year
  Sex: Male

DRUGS (14)
  1. DUPIXENT [Suspect]
     Active Substance: DUPILUMAB
     Indication: Asthma
     Dosage: 300 MG, QOW
     Route: 058
     Dates: start: 20201204
  2. ATORVASTATIN [Concomitant]
     Active Substance: ATORVASTATIN
     Dosage: 20MG
  3. ATORVASTATIN [Concomitant]
     Active Substance: ATORVASTATIN
  4. FLUTICASONE [Concomitant]
     Active Substance: FLUTICASONE
     Dosage: 300MG
  5. FLUTICASONE [Concomitant]
     Active Substance: FLUTICASONE
  6. GABAPENTIN [Concomitant]
     Active Substance: GABAPENTIN
     Dosage: 125MG
  7. GABAPENTIN [Concomitant]
     Active Substance: GABAPENTIN
  8. LOSARTAN [Concomitant]
     Active Substance: LOSARTAN
     Indication: Hypertension
     Dosage: 10MG
  9. OXYCODONE [Concomitant]
     Active Substance: OXYCODONE
     Dosage: 5MG
  10. QVAR [Concomitant]
     Active Substance: BECLOMETHASONE DIPROPIONATE
     Dosage: 20MG
  11. SILDENAFIL [Concomitant]
     Active Substance: SILDENAFIL
     Dosage: 20MG
  12. SPIRIVA [Concomitant]
     Active Substance: TIOTROPIUM BROMIDE MONOHYDRATE
     Dosage: 20MG
  13. OMNIPAQUE [Concomitant]
     Active Substance: IOHEXOL
  14. SUPREP BOWEL PREP [Concomitant]
     Active Substance: MAGNESIUM SULFATE\POTASSIUM SULFATE\SODIUM SULFATE

REACTIONS (3)
  - Asthma [Recovered/Resolved]
  - Asthma [Unknown]
  - Drug ineffective [Unknown]

NARRATIVE: CASE EVENT DATE: 20221115
